FAERS Safety Report 16363354 (Version 1)
Quarter: 2019Q2

REPORT INFORMATION
  Report Type: Spontaneous
  Country: US (occurrence: US)
  Receive Date: 20190528
  Receipt Date: 20190528
  Transmission Date: 20190711
  Serious: Yes (Other)
  Sender: FDA-Public Use
  Company Number: US-STRIDES ARCOLAB LIMITED-2018SP008935

PATIENT

DRUGS (2)
  1. BIVALIRUDIN. [Concomitant]
     Active Substance: BIVALIRUDIN
     Indication: VENOUS STENOSIS
     Dosage: 0.3 MG/KG, UNKNOWN
     Route: 023
  2. VANCOMYCIN [Suspect]
     Active Substance: VANCOMYCIN
     Indication: PRODUCT USED FOR UNKNOWN INDICATION
     Dosage: UNK
     Route: 065

REACTIONS (1)
  - Renal impairment [Unknown]
